FAERS Safety Report 5712083-7 (Version None)
Quarter: 2008Q2

REPORT INFORMATION
  Report Type: 
  Country: None (occurrence: None)
  Receive Date: 20080418
  Receipt Date: 20080402
  Transmission Date: 20081010
  Serious: Yes (Hospitalization)
  Sender: FDA-Public Use
  Company Number: DSA_31598_2008

PATIENT
  Sex: Male
  Weight: 100 kg

DRUGS (11)
  1. ATIVAN [Suspect]
     Dates: start: 20080212, end: 20080212
  2. EFFEXOR XR [Suspect]
     Dosage: ORAL
     Route: 048
     Dates: start: 20080212, end: 20080212
  3. FLEXERIL [Suspect]
     Dates: start: 20080212, end: 20080212
  4. HYDROCODONE BITARTRATE [Suspect]
     Dates: start: 20080212, end: 20080212
  5. PAXIL [Suspect]
     Dates: start: 20080212, end: 20080212
  6. ETHANOL [Suspect]
  7. MORPHINE [Suspect]
     Indication: DRUG USE FOR UNKNOWN INDICATION
     Dates: start: 20080212, end: 20080212
  8. EFFEXOR XR [Suspect]
     Indication: DEPRESSION
     Dosage: UP TO 75 MG DAILY ORAL
     Route: 048
  9. OXYCODONE HYDROCHLORIDE [Concomitant]
  10. XANAX [Concomitant]
  11. ADDERALL 10 [Concomitant]

REACTIONS (12)
  - ABNORMAL BEHAVIOUR [None]
  - ALCOHOL USE [None]
  - CONFUSIONAL STATE [None]
  - DELIRIUM [None]
  - DEPRESSION [None]
  - DRUG SCREEN POSITIVE [None]
  - FEELING ABNORMAL [None]
  - HALLUCINATION, AUDITORY [None]
  - MULTIPLE DRUG OVERDOSE [None]
  - RESPIRATORY FAILURE [None]
  - SUICIDE ATTEMPT [None]
  - UNRESPONSIVE TO STIMULI [None]
